FAERS Safety Report 7088759-9 (Version None)
Quarter: 2010Q4

REPORT INFORMATION
  Report Type: 
  Country: None (occurrence: None)
  Receive Date: 20101108
  Receipt Date: 20101027
  Transmission Date: 20110411
  Serious: Yes (Other)
  Sender: FDA-Public Use
  Company Number: US-US-EMD SERONO, INC.-233141K08USA

PATIENT
  Sex: Female
  Weight: 98 kg

DRUGS (9)
  1. REBIF [Suspect]
     Indication: MULTIPLE SCLEROSIS
     Route: 058
     Dates: start: 20080616, end: 20081201
  2. LYRICA [Concomitant]
     Indication: NEURALGIA
     Route: 065
     Dates: start: 20080618, end: 20081201
  3. TEGRETOL [Concomitant]
     Indication: CONVULSION
     Route: 065
     Dates: start: 20080623, end: 20081201
  4. TEGRETOL [Concomitant]
     Indication: NEURALGIA
  5. METFORMIN [Concomitant]
     Indication: NEURALGIA
     Dates: start: 20080701
  6. KEPPRA [Concomitant]
     Indication: NEURALGIA
     Dates: start: 20080101, end: 20081201
  7. OMEPRAZOLE [Concomitant]
     Indication: GASTROOESOPHAGEAL REFLUX DISEASE
  8. TEMAZEPAM [Concomitant]
     Indication: INSOMNIA
     Dates: start: 20080701
  9. AMANTADINE [Concomitant]
     Indication: FATIGUE
     Dates: end: 20081201

REACTIONS (2)
  - ABORTION SPONTANEOUS [None]
  - DRUG EXPOSURE DURING PREGNANCY [None]
